FAERS Safety Report 5869065-4 (Version None)
Quarter: 2008Q3

REPORT INFORMATION
  Report Type: 
  Country: None (occurrence: None)
  Receive Date: 20080903
  Receipt Date: 20080829
  Transmission Date: 20090109
  Serious: Yes (Death)
  Sender: FDA-Public Use
  Company Number: B0534928A

PATIENT

DRUGS (3)
  1. LAMIVUDINE [Suspect]
     Indication: ANTIVIRAL PROPHYLAXIS
  2. ZIDOVUDINE [Suspect]
     Indication: ANTIVIRAL PROPHYLAXIS
  3. NELFINAVIR MESILATE [Suspect]
     Indication: ANTIVIRAL PROPHYLAXIS

REACTIONS (2)
  - ANAEMIA [None]
  - SUDDEN DEATH [None]
